FAERS Safety Report 14560948 (Version 2)
Quarter: 2021Q2

REPORT INFORMATION
  Report Type: Spontaneous
  Country: CA (occurrence: CA)
  Receive Date: 20180222
  Receipt Date: 20210506
  Transmission Date: 20210716
  Serious: Yes (Hospitalization, Other)
  Sender: FDA-Public Use
  Company Number: CA-009507513-1802CAN009165

PATIENT
  Age: 53 Year
  Sex: Female

DRUGS (2)
  1. KEYTRUDA [Suspect]
     Active Substance: PEMBROLIZUMAB
     Indication: METASTATIC NEOPLASM
     Dosage: 140,0 MG, 1 EVERY 3 WEEKS
     Route: 042
     Dates: start: 20170719
  2. CYRAMZA [Concomitant]
     Active Substance: RAMUCIRUMAB
     Dosage: SINGLE USE VIALS
     Dates: start: 20170719

REACTIONS (4)
  - Hepatic failure [Recovered/Resolved]
  - Pancreatic cyst [Recovered/Resolved]
  - Abdominal pain [Recovered/Resolved]
  - Jaundice [Recovered/Resolved]

NARRATIVE: CASE EVENT DATE: 20170729
